FAERS Safety Report 8237071-0 (Version None)
Quarter: 2012Q1

REPORT INFORMATION
  Report Type: 
  Country: None (occurrence: None)
  Receive Date: 20120327
  Receipt Date: 20120322
  Transmission Date: 20120608
  Serious: Yes (Other)
  Sender: FDA-Public Use
  Company Number: CH-PFIZER INC-2012074295

PATIENT
  Age: 50 Year
  Sex: Male

DRUGS (1)
  1. MINIPRESS [Suspect]
     Indication: POST-TRAUMATIC STRESS DISORDER
     Dosage: 10 MG, 1X/DAY

REACTIONS (1)
  - HEARING IMPAIRED [None]
